FAERS Safety Report 11984068 (Version 6)
Quarter: 2017Q4

REPORT INFORMATION
  Report Type: Report from Study
  Country: CA (occurrence: CA)
  Receive Date: 20160201
  Receipt Date: 20171017
  Transmission Date: 20180320
  Serious: Yes (Hospitalization, Other)
  Sender: FDA-Public Use
  Company Number: PHHY2012CA059738

PATIENT
  Age: 59 Year
  Sex: Female

DRUGS (3)
  1. SANDOSTATIN LAR DEPOT [Suspect]
     Active Substance: OCTREOTIDE ACETATE
     Indication: ACROMEGALY
     Dosage: 10 MG, QMO (EVERY 5 WEEKS)
     Route: 030
     Dates: start: 20050101
  2. SANDOSTATIN LAR DEPOT [Interacting]
     Active Substance: OCTREOTIDE ACETATE
     Dosage: 10 MG, QMO (EVERY 5 WEEKS)
     Route: 030
     Dates: start: 20141201
  3. SANDOSTATIN LAR DEPOT [Interacting]
     Active Substance: OCTREOTIDE ACETATE
     Dosage: 10 MG, QMO (ONCE A MONTH)
     Route: 030
     Dates: start: 20141006

REACTIONS (9)
  - Malaise [Unknown]
  - Blood pressure systolic increased [Unknown]
  - Pain [Unknown]
  - Cystitis [Unknown]
  - Lung neoplasm malignant [Unknown]
  - Nephrolithiasis [Unknown]
  - Appetite disorder [Recovering/Resolving]
  - Dysuria [Recovered/Resolved]
  - Blood pressure increased [Unknown]

NARRATIVE: CASE EVENT DATE: 20151111
